FAERS Safety Report 9658168 (Version 1)
Quarter: 2013Q4

REPORT INFORMATION
  Report Type: Spontaneous
  Country: US (occurrence: US)
  Receive Date: 20131030
  Receipt Date: 20131030
  Transmission Date: 20140711
  Serious: No
  Sender: FDA-Public Use
  Company Number: US-PURDUE-USA-2012-0080922

PATIENT
  Age: 18 Year
  Sex: Female
  Weight: 58.96 kg

DRUGS (2)
  1. OXYCONTIN (NDA 22-272) [Suspect]
     Indication: BACK PAIN
  2. PLAN B ONE-STEP [Suspect]
     Indication: CONTRACEPTION
     Dosage: 1.5 MG, ONCE
     Route: 048
     Dates: start: 20111226, end: 20111226

REACTIONS (4)
  - Hot flush [Recovered/Resolved]
  - Back pain [Not Recovered/Not Resolved]
  - Vaginal haemorrhage [Not Recovered/Not Resolved]
  - Abdominal pain [Not Recovered/Not Resolved]
